FAERS Safety Report 25775489 (Version 2)
Quarter: 2025Q3

REPORT INFORMATION
  Report Type: Spontaneous
  Country: US (occurrence: US)
  Receive Date: 20250909
  Receipt Date: 20250929
  Transmission Date: 20251020
  Serious: No
  Sender: ELI LILLY AND COMPANY
  Company Number: US-ELI_LILLY_AND_COMPANY-US202508014866

PATIENT
  Age: 60 Year
  Sex: Male

DRUGS (2)
  1. KISUNLA [Suspect]
     Active Substance: DONANEMAB-AZBT
     Indication: Product used for unknown indication
     Route: 065
     Dates: start: 20250801
  2. KISUNLA [Suspect]
     Active Substance: DONANEMAB-AZBT
     Route: 065
     Dates: start: 20250829

REACTIONS (6)
  - Orthostatic headache [Unknown]
  - Panic attack [Unknown]
  - Anxiety [Unknown]
  - Head discomfort [Unknown]
  - Flushing [Unknown]
  - Erythema [Unknown]

NARRATIVE: CASE EVENT DATE: 20250829
